FAERS Safety Report 8019166-X (Version None)
Quarter: 2012Q1

REPORT INFORMATION
  Report Type: 
  Country: None (occurrence: None)
  Receive Date: 20120103
  Receipt Date: 20111228
  Transmission Date: 20120608
  Serious: No
  Sender: FDA-Public Use
  Company Number: US-JNJFOC-20111211843

PATIENT
  Sex: Female
  Weight: 83.92 kg

DRUGS (1)
  1. INVEGA [Suspect]
     Indication: BIPOLAR DISORDER
     Dosage: DAILY AT BED TIME.
     Route: 048
     Dates: start: 20080101, end: 20111201

REACTIONS (4)
  - MALAISE [None]
  - FEELING ABNORMAL [None]
  - ALCOHOL USE [None]
  - ACTIVITIES OF DAILY LIVING IMPAIRED [None]
